FAERS Safety Report 8531312-8 (Version None)
Quarter: 2012Q3

REPORT INFORMATION
  Report Type: 
  Country: None (occurrence: None)
  Receive Date: 20120710
  Receipt Date: 20120625
  Transmission Date: 20120928
  Serious: No
  Sender: FDA-Public Use
  Company Number: SPI201200148

PATIENT
  Age: 77 Year
  Sex: Female
  Weight: 48.1 kg

DRUGS (10)
  1. AVAPRO (IRBESARTAN) ONGOING [Concomitant]
  2. ASPIRIN (ASPIRIN) ONGOING [Concomitant]
  3. AMITIZA [Suspect]
     Indication: CONSTIPATION
     Dosage: 24 MCG, QD, ORAL
     Route: 048
     Dates: start: 20120623, end: 20120624
  4. LANTUS (INSULIN GLARGINE) ONGOING [Concomitant]
  5. PERCOCET (OXYCODONE HYDROCHLORIDE, PARACETAMOL) TABLET ONGOING [Concomitant]
  6. METFORMIN (METFORMIN) ONGOING [Concomitant]
  7. WELCHOL (COLESEVELAM HYDROCHLORIDE) ONGOING [Concomitant]
  8. PLAVIX (CLOPIDOGREL) ONGOING [Concomitant]
  9. ISOSORBIDE MONONITRATE (ISOSORBIDE MONONITRATE) ONGOING [Concomitant]
  10. LEVOTHYROXINE (LEVOTHYROXINE) ONGOING [Concomitant]

REACTIONS (4)
  - VISION BLURRED [None]
  - DYSPNOEA [None]
  - NAUSEA [None]
  - HEADACHE [None]
